FAERS Safety Report 8648589 (Version 2)
Quarter: 2013Q2

REPORT INFORMATION
  Report Type: Spontaneous
  Country: DE (occurrence: DE)
  Receive Date: 20120703
  Receipt Date: 20130412
  Transmission Date: 20140414
  Serious: Yes (Other)
  Sender: FDA-Public Use
  Company Number: DE-TEVA-345228GER

PATIENT
  Sex: Male

DRUGS (4)
  1. AZILECT [Suspect]
     Indication: PARKINSON^S DISEASE
  2. MADOPAR [Concomitant]
  3. REQUIP [Concomitant]
  4. STALEVO [Concomitant]

REACTIONS (1)
  - Non-Hodgkin^s lymphoma [Unknown]
